FAERS Safety Report 5822139-6 (Version None)
Quarter: 2008Q3

REPORT INFORMATION
  Report Type: 
  Country: None (occurrence: None)
  Receive Date: 20080721
  Receipt Date: 20080708
  Transmission Date: 20090109
  Serious: Yes (Hospitalization)
  Sender: FDA-Public Use
  Company Number: 2008001617

PATIENT
  Age: 67 Year
  Sex: Male

DRUGS (1)
  1. TARCEVA [Suspect]
     Indication: LARGE CELL CARCINOMA OF THE RESPIRATORY TRACT STAGE UNSPECIFIED
     Dosage: 150 MG, QD, ORAL
     Route: 048
     Dates: start: 20080507, end: 20080606

REACTIONS (18)
  - ABDOMINAL PAIN [None]
  - ASCITES [None]
  - BACK PAIN [None]
  - BILE OUTPUT DECREASED [None]
  - CONDITION AGGRAVATED [None]
  - COUGH [None]
  - DIARRHOEA [None]
  - DRUG EFFECT DECREASED [None]
  - DYSPNOEA [None]
  - HEPATIC ATROPHY [None]
  - JAUNDICE [None]
  - LIVER FUNCTION TEST ABNORMAL [None]
  - NAUSEA [None]
  - PAIN [None]
  - RASH ERYTHEMATOUS [None]
  - RASH PRURITIC [None]
  - SPLENOMEGALY [None]
  - VOMITING [None]
